FAERS Safety Report 6894885-7 (Version None)
Quarter: 2010Q3

REPORT INFORMATION
  Report Type: 
  Country: None (occurrence: None)
  Receive Date: 20100728
  Receipt Date: 20100723
  Transmission Date: 20110219
  Serious: Yes (Hospitalization)
  Sender: FDA-Public Use
  Company Number: GRT 2010-12607

PATIENT
  Age: 53 Year
  Sex: Male

DRUGS (8)
  1. LIDOCAINE HCL [Suspect]
     Indication: CONSTIPATION
     Dosage: TOPICAL
     Route: 061
     Dates: start: 20100202
  2. OXYCODONE HCL [Suspect]
     Indication: ANALGESIC THERAPY
     Dosage: 37.5MG, 1/DAY
  3. SUNITINIB [Suspect]
     Indication: RENAL CELL CARCINOMA
     Dosage: 50MG
     Dates: start: 20090924, end: 20091201
  4. SUNITINIB [Suspect]
     Indication: RENAL CELL CARCINOMA
     Dosage: 37.5MG
     Dates: start: 20091214
  5. GLICLAZIDE [Concomitant]
  6. CRESTOR [Concomitant]
  7. ACETYLSALICYLATE LYSINE [Concomitant]
  8. ESOMEPRAZOLE MAGNECIUM [Concomitant]

REACTIONS (2)
  - CONSTIPATION [None]
  - FLANK PAIN [None]
